FAERS Safety Report 9321632 (Version 1)
Quarter: 2013Q2

REPORT INFORMATION
  Report Type: Spontaneous
  Country: TR (occurrence: None)
  Receive Date: 20130529
  Receipt Date: 20130529
  Transmission Date: 20140414
  Serious: Yes (Other)
  Sender: FDA-Public Use
  Company Number: B0893308A

PATIENT
  Age: 42 Year
  Sex: Male

DRUGS (3)
  1. CARVEDILOL [Suspect]
     Indication: MYOCARDIAL INFARCTION
  2. PERINDOPRIL [Suspect]
     Indication: MYOCARDIAL INFARCTION
  3. HONEY BEE VENOM [Suspect]
     Indication: ALLERGY TO ARTHROPOD STING

REACTIONS (2)
  - Anaphylactic reaction [None]
  - Myocardial infarction [None]
